FAERS Safety Report 22891333 (Version 3)
Quarter: 2024Q1

REPORT INFORMATION
  Report Type: Report from Study
  Country: US (occurrence: US)
  Receive Date: 20230901
  Receipt Date: 20240129
  Transmission Date: 20240410
  Serious: Yes (Other)
  Sender: FDA-Public Use
  Company Number: US-TAKEDA-2023TUS083790

PATIENT
  Sex: Male

DRUGS (11)
  1. MARIBAVIR [Suspect]
     Active Substance: MARIBAVIR
     Indication: Cytomegalovirus infection
     Dosage: 400 MILLIGRAM, BID
     Route: 048
     Dates: start: 20230902
  2. MARIBAVIR [Suspect]
     Active Substance: MARIBAVIR
     Dosage: 400 MILLIGRAM, BID
     Route: 048
  3. ASCORBIC ACID\BIOTIN\CALCIUM PANTOTHENATE\CYANOCOBALAMIN\FOLIC ACID\NI [Concomitant]
     Active Substance: ASCORBIC ACID\BIOTIN\CALCIUM PANTOTHENATE\CYANOCOBALAMIN\FOLIC ACID\NIACINAMIDE\PYRIDOXINE HYDROCHLO
     Dosage: UNK
     Route: 065
     Dates: start: 20211110
  4. VITAMIN D3 [Concomitant]
     Active Substance: CHOLECALCIFEROL
     Dosage: 2 DOSAGE FORM, QD
     Route: 065
     Dates: start: 20210404
  5. FOLIC ACID [Concomitant]
     Active Substance: FOLIC ACID
     Dosage: 1 MILLIGRAM
     Route: 065
     Dates: start: 20211110
  6. COZAAR [Concomitant]
     Active Substance: LOSARTAN POTASSIUM
     Dosage: 25 MILLIGRAM
     Route: 065
     Dates: start: 20211110
  7. MYFORTIC [Concomitant]
     Active Substance: MYCOPHENOLATE SODIUM
     Dosage: 2 DOSAGE FORM, BID
     Route: 048
     Dates: start: 20230713
  8. DELTASONE [Concomitant]
     Active Substance: PREDNISONE
     Dosage: 1 DOSAGE FORM, QD
     Route: 048
     Dates: start: 20230109
  9. PROGRAF [Concomitant]
     Active Substance: TACROLIMUS
     Dosage: 1 DOSAGE FORM, QD
     Route: 048
     Dates: start: 20230725
  10. PROGRAF [Concomitant]
     Active Substance: TACROLIMUS
     Dosage: 3 DOSAGE FORM, BID
     Route: 048
  11. VASCEPA [Concomitant]
     Active Substance: ICOSAPENT ETHYL
     Dosage: 1 GRAM
     Route: 065
     Dates: start: 20210927

REACTIONS (15)
  - Polyomavirus viraemia [Unknown]
  - Cytomegalovirus infection [Unknown]
  - Renal impairment [Unknown]
  - Sinus disorder [Unknown]
  - Rhinorrhoea [Unknown]
  - Cough [Unknown]
  - Mucosal disorder [Unknown]
  - Proteinuria [Unknown]
  - Respiratory syncytial virus infection [Unknown]
  - Hypermagnesaemia [Unknown]
  - Hyperphosphataemia [Unknown]
  - Lipid metabolism disorder [Unknown]
  - Hyperparathyroidism [Unknown]
  - Autoinflammatory disease [Unknown]
  - Off label use [Unknown]
